FAERS Safety Report 10203420 (Version 2)
Quarter: 2014Q3

REPORT INFORMATION
  Report Type: Spontaneous
  Country: US (occurrence: None)
  Receive Date: 20140523
  Receipt Date: 20140730
  Transmission Date: 20150326
  Serious: Yes (Hospitalization, Other)
  Sender: FDA-Public Use
  Company Number: UNT-2014-000416

PATIENT
  Age: 64 Year
  Sex: Female
  Weight: 52.6 kg

DRUGS (3)
  1. METOPROLOL [Concomitant]
     Active Substance: METOPROLOL
  2. LOSARTAN [Concomitant]
     Active Substance: LOSARTAN
  3. REMODULIN [Suspect]
     Active Substance: TREPROSTINIL
     Indication: COR PULMONALE CHRONIC
     Dosage: 0.260 UG/KG/MIN, CONTINUING, IV DRIP
     Route: 041
     Dates: start: 20050425

REACTIONS (16)
  - Respiratory failure [None]
  - Cardiac failure congestive [None]
  - Sinus tachycardia [None]
  - Scleroderma [None]
  - Pulmonary hypertension [None]
  - Renal failure chronic [None]
  - Thrombocytopenia [None]
  - Condition aggravated [None]
  - Cellulitis [None]
  - Interstitial lung disease [None]
  - Blood pressure increased [None]
  - Pleural effusion [None]
  - Haemodialysis [None]
  - Sepsis [None]
  - Malaise [None]
  - Dialysis [None]

NARRATIVE: CASE EVENT DATE: 20140507
